FAERS Safety Report 20406620 (Version 3)
Quarter: 2022Q2

REPORT INFORMATION
  Report Type: Spontaneous
  Country: FR (occurrence: FR)
  Receive Date: 20220131
  Receipt Date: 20220408
  Transmission Date: 20220721
  Serious: Yes (Hospitalization, Other)
  Sender: FDA-Public Use
  Company Number: FR-NOVARTISPH-NVSC2022FR018385

PATIENT
  Age: 71 Year
  Sex: Male

DRUGS (3)
  1. BISOPROLOL [Suspect]
     Active Substance: BISOPROLOL
     Indication: Acute coronary syndrome
     Dosage: 2.5 MG, BID (IN THE MORNING AND EVENING)
     Route: 065
  2. BISOPROLOL [Suspect]
     Active Substance: BISOPROLOL
     Dosage: 1.25 MG (LOWEST DOSE)
     Route: 065
  3. GABAPENTIN [Concomitant]
     Active Substance: GABAPENTIN
     Indication: Neuralgia
     Dosage: UNK
     Route: 065
     Dates: start: 202008

REACTIONS (2)
  - Cardiac perfusion defect [Unknown]
  - Angina pectoris [Recovering/Resolving]
